FAERS Safety Report 16751107 (Version 2)
Quarter: 2019Q3

REPORT INFORMATION
  Report Type: Spontaneous
  Country: CN (occurrence: CN)
  Receive Date: 20190828
  Receipt Date: 20190910
  Transmission Date: 20191005
  Serious: Yes (Other)
  Sender: FDA-Public Use
  Company Number: CN-009507513-1908CHN009173

PATIENT
  Age: 83 Year
  Sex: Male
  Weight: 70 kg

DRUGS (1)
  1. INVANZ [Suspect]
     Active Substance: ERTAPENEM SODIUM
     Indication: DEVICE RELATED INFECTION
     Dosage: 1 GRAM, QD
     Route: 041
     Dates: start: 20190806, end: 20190818

REACTIONS (2)
  - Mental disorder [Recovering/Resolving]
  - Epilepsy [Recovering/Resolving]

NARRATIVE: CASE EVENT DATE: 20190808
